FAERS Safety Report 16787004 (Version 1)
Quarter: 2019Q3

REPORT INFORMATION
  Report Type: Spontaneous
  Country: US (occurrence: US)
  Receive Date: 20190909
  Receipt Date: 20190909
  Transmission Date: 20191005
  Serious: Yes (Other)
  Sender: FDA-Public Use
  Company Number: US-GILEAD-2019-0427338

PATIENT
  Age: 64 Year
  Sex: Male

DRUGS (1)
  1. RANEXA [Suspect]
     Active Substance: RANOLAZINE
     Indication: ANGINA PECTORIS
     Dosage: STARTED A FEW WEEKS AGO (2019)
     Route: 065

REACTIONS (1)
  - End stage renal disease [Not Recovered/Not Resolved]
